FAERS Safety Report 24448504 (Version 2)
Quarter: 2024Q4

REPORT INFORMATION
  Report Type: Spontaneous
  Country: DE (occurrence: DE)
  Receive Date: 20241017
  Receipt Date: 20241022
  Transmission Date: 20250115
  Serious: Yes (Hospitalization)
  Sender: AUROBINDO
  Company Number: DE-ROCHE-2702070

PATIENT
  Age: 80 Year
  Sex: Female
  Weight: 48 kg

DRUGS (4)
  1. PACLITAXEL [Suspect]
     Active Substance: PACLITAXEL
     Indication: Breast cancer
     Dosage: 160 MILLIGRAM, CYCLICAL (ONGOING DATE OF LAST APPLICATION PRIOR EVENT: 15 OCT 2020)
     Route: 065
     Dates: start: 20200803
  2. CARBOPLATIN [Suspect]
     Active Substance: CARBOPLATIN
     Indication: Breast cancer
     Dosage: 450 MILLIGRAM, CYCLICAL (ONGOING, DATE OF LAST APPLICATION PRIOR EVENT: 15/OCT/2020)
     Route: 065
     Dates: start: 20200803
  3. PERTUZUMAB [Suspect]
     Active Substance: PERTUZUMAB
     Indication: Breast cancer
     Dosage: 420 MILLIGRAM, CYCLICAL (DATE OF LAST APPLICATION PRIOR EVENT: 15 OCT 2020 ONGOING)
     Route: 065
     Dates: start: 20200803
  4. TRASTUZUMAB [Suspect]
     Active Substance: TRASTUZUMAB
     Indication: Breast cancer
     Dosage: 310 MILLIGRAM, CYCLICAL (ONGOING DATE OF LAST APPLICATION PRIOR EVENT: 15 OCT 2020)
     Route: 065
     Dates: start: 20200803

REACTIONS (4)
  - Cystitis [Not Recovered/Not Resolved]
  - Urinary tract infection [Unknown]
  - Haematuria [Unknown]
  - Oropharyngeal candidiasis [Unknown]

NARRATIVE: CASE EVENT DATE: 20201015
